FAERS Safety Report 10925246 (Version 1)
Quarter: 2015Q1

REPORT INFORMATION
  Report Type: Spontaneous
  Country: US (occurrence: None)
  Receive Date: 20150316
  Receipt Date: 20150316
  Transmission Date: 20150721
  Serious: Yes (Other)
  Sender: FDA-Public Use
  Company Number: None

PATIENT
  Age: 58 Year
  Sex: Female
  Weight: 63.5 kg

DRUGS (3)
  1. AZITHROMYCIN 250 MG GREENSTONE BRAND [Suspect]
     Active Substance: AZITHROMYCIN DIHYDRATE
     Indication: EAR INFECTION
     Dosage: 2 PILLS DAY 1, 1 PILL A DAY
     Route: 048
     Dates: start: 20150309, end: 20150312
  2. LORATADINE. [Concomitant]
     Active Substance: LORATADINE
  3. AFRIN [Concomitant]
     Active Substance: OXYMETAZOLINE

REACTIONS (4)
  - Eye disorder [None]
  - Migraine with aura [None]
  - Photopsia [None]
  - Head discomfort [None]

NARRATIVE: CASE EVENT DATE: 20150311
